FAERS Safety Report 18319867 (Version 1)
Quarter: 2020Q3

REPORT INFORMATION
  Report Type: Spontaneous
  Country: US (occurrence: US)
  Receive Date: 20200929
  Receipt Date: 20200929
  Transmission Date: 20201103
  Serious: No
  Sender: FDA-Public Use
  Company Number: US-ASTRAZENECA-2020SF19511

PATIENT
  Sex: Male
  Weight: 93 kg

DRUGS (1)
  1. FASENRA [Suspect]
     Active Substance: BENRALIZUMAB
     Indication: ASTHMA
     Dosage: 30 MG FIRST THREE DOSES EVERY FOUR WEEKS AND NOW EVERY EIGHT WEEKS
     Route: 058

REACTIONS (2)
  - Asthma [Not Recovered/Not Resolved]
  - Memory impairment [Not Recovered/Not Resolved]
